FAERS Safety Report 25857320 (Version 1)
Quarter: 2025Q3

REPORT INFORMATION
  Report Type: Spontaneous
  Country: PR (occurrence: PR)
  Receive Date: 20250929
  Receipt Date: 20250929
  Transmission Date: 20251021
  Serious: Yes (Hospitalization)
  Sender: STRIDES
  Company Number: PR-STRIDES ARCOLAB LIMITED-2025SP012239

PATIENT
  Age: 34 Year
  Sex: Female

DRUGS (1)
  1. CABERGOLINE [Suspect]
     Active Substance: CABERGOLINE
     Indication: Prolactin-producing pituitary tumour
     Route: 065

REACTIONS (1)
  - Renal perivascular epithelioid cell tumour [Recovered/Resolved]
